FAERS Safety Report 6184701-3 (Version None)
Quarter: 2009Q2

REPORT INFORMATION
  Report Type: 
  Country: None (occurrence: None)
  Receive Date: 20090508
  Receipt Date: 20090504
  Transmission Date: 20091009
  Serious: Yes (Disabling, Other)
  Sender: FDA-Public Use
  Company Number: US-ASTRAZENECA-2009UW11410

PATIENT
  Age: 42 Year
  Sex: Female

DRUGS (3)
  1. ATACAND HCT [Suspect]
     Indication: HYPERTENSION
     Dosage: 16/12.5 MG
     Route: 048
     Dates: start: 20010101
  2. ADALAT OROR [Concomitant]
     Indication: HYPERTENSION
     Route: 048
     Dates: start: 20010101
  3. BISOPROLOL FUMARATE [Concomitant]
     Indication: HYPERTENSION
     Route: 048
     Dates: start: 20010101

REACTIONS (3)
  - GLAUCOMA [None]
  - OCULAR HYPERTENSION [None]
  - UTERINE LEIOMYOMA [None]
